FAERS Safety Report 7115404-6 (Version None)
Quarter: 2010Q4

REPORT INFORMATION
  Report Type: 
  Country: None (occurrence: None)
  Receive Date: 20101122
  Receipt Date: 20101118
  Transmission Date: 20110411
  Serious: Yes (Death)
  Sender: FDA-Public Use
  Company Number: US-SANOFI-AVENTIS-2010SA070095

PATIENT
  Age: 70 Year
  Sex: Male
  Weight: 84 kg

DRUGS (5)
  1. DOCETAXEL [Suspect]
     Indication: PROSTATE CANCER
     Route: 041
     Dates: start: 20100331, end: 20100331
  2. DOCETAXEL [Suspect]
     Route: 041
     Dates: start: 20101103, end: 20101103
  3. BLINDED THERAPY [Suspect]
     Indication: PROSTATE CANCER
     Route: 048
     Dates: start: 20100331, end: 20101116
  4. PREDNISONE [Suspect]
     Indication: PROSTATE CANCER
     Route: 048
     Dates: start: 20100331, end: 20101116
  5. DEXAMETHASONE [Suspect]
     Indication: PREMEDICATION
     Dates: end: 20101104

REACTIONS (1)
  - SUDDEN DEATH [None]
